FAERS Safety Report 11123277 (Version 2)
Quarter: 2015Q2

REPORT INFORMATION
  Report Type: Spontaneous
  Country: US (occurrence: US)
  Receive Date: 20150519
  Receipt Date: 20150626
  Transmission Date: 20150821
  Serious: No
  Sender: FDA-Public Use
  Company Number: US-GLAXOSMITHKLINE-US2015066582

PATIENT
  Age: 83 Year
  Sex: Male

DRUGS (5)
  1. FLOMAX [Concomitant]
     Active Substance: TAMSULOSIN HYDROCHLORIDE
  2. VITAMIN B12 [Concomitant]
     Active Substance: CYANOCOBALAMIN
  3. GABAPENTIN. [Concomitant]
     Active Substance: GABAPENTIN
  4. VICODIN [Concomitant]
     Active Substance: ACETAMINOPHEN\HYDROCODONE BITARTRATE
  5. AVODART [Suspect]
     Active Substance: DUTASTERIDE
     Indication: PROSTATOMEGALY
     Route: 048
     Dates: start: 201501, end: 20150501

REACTIONS (1)
  - Blood pressure decreased [Not Recovered/Not Resolved]

NARRATIVE: CASE EVENT DATE: 201501
